FAERS Safety Report 19960154 (Version 3)
Quarter: 2022Q1

REPORT INFORMATION
  Report Type: Report from Study
  Country: DE (occurrence: None)
  Receive Date: 20211015
  Receipt Date: 20220302
  Transmission Date: 20220423
  Serious: Yes (Hospitalization, Disabling, Other)
  Sender: FDA-Public Use
  Company Number: DE-MERCK HEALTHCARE KGAA-9250878

PATIENT
  Age: 58 Year
  Sex: Female
  Weight: 103 kg

DRUGS (2)
  1. CLADRIBINE [Suspect]
     Active Substance: CLADRIBINE
     Indication: Relapsing-remitting multiple sclerosis
     Dosage: WEEK ONE THERAPY: TOOK 20 MG ON 05 OCT 2020 AND 09 OCT 2020
     Route: 048
     Dates: start: 20201005, end: 20201009
  2. CLADRIBINE [Suspect]
     Active Substance: CLADRIBINE
     Dosage: WEEK FIVE THERAPY: TOOK 20 MG ON 02 NOV 2020 AND 20 MG ON 06 NOV 2020
     Route: 048
     Dates: start: 20201102, end: 20201106

REACTIONS (1)
  - Cellulitis [Recovered/Resolved with Sequelae]

NARRATIVE: CASE EVENT DATE: 20201221
